FAERS Safety Report 5590836-6 (Version None)
Quarter: 2008Q1

REPORT INFORMATION
  Report Type: 
  Country: None (occurrence: None)
  Receive Date: 20080110
  Receipt Date: 20071228
  Transmission Date: 20080703
  Serious: Yes (Hospitalization)
  Sender: FDA-Public Use
  Company Number: TCI2007A07095

PATIENT
  Age: 70 Year
  Sex: Male

DRUGS (4)
  1. ACTOS [Suspect]
     Indication: DIABETES MELLITUS
     Dosage: 30 MG (30 MG, 1 D)
     Route: 048
     Dates: start: 20071023
  2. BASEN TABLETS 0.2 (VOGLIBOSE) [Concomitant]
  3. FLUVOXAMINE MALEATE [Concomitant]
  4. ANTITHROMBOTIC AGENT [Concomitant]

REACTIONS (2)
  - CEREBRAL INFARCTION [None]
  - DISEASE RECURRENCE [None]
